FAERS Safety Report 7702328-6 (Version None)
Quarter: 2011Q3

REPORT INFORMATION
  Report Type: 
  Country: None (occurrence: None)
  Receive Date: 20110822
  Receipt Date: 20110810
  Transmission Date: 20111222
  Serious: Yes (Hospitalization, Other)
  Sender: FDA-Public Use
  Company Number: PHHY2011SE72417

PATIENT
  Sex: Female

DRUGS (12)
  1. FUROSEMIDE [Suspect]
     Indication: HYPERTENSION
     Dosage: UNK UKN, UNK
     Route: 048
  2. ALVEDON [Concomitant]
     Dosage: 500 MG, UNK
  3. BEHEPAN [Concomitant]
     Dosage: 1 MG, UNK
  4. METOPROLOL [Suspect]
     Indication: HYPERTENSION
     Dosage: UNK UKN, UNK
     Route: 048
     Dates: end: 20110616
  5. ATACAND [Suspect]
     Dosage: UNK UKN, UNK
     Route: 048
     Dates: end: 20110616
  6. MOVIPREP [Concomitant]
     Route: 048
  7. OMEPRAZOLE [Concomitant]
  8. CITALOPRAM [Concomitant]
  9. LEVOTHYROXINE SODIUM [Concomitant]
     Dosage: 100 UG, UNK
  10. KALCIPOS-D [Concomitant]
     Dosage: 500 MG/800 IE
  11. MORPHINE SULFATE [Concomitant]
     Dosage: 10 MG, UNK
  12. CILAXORAL [Concomitant]
     Dosage: 7.5 MG/ML, UNK
     Route: 048

REACTIONS (6)
  - BRADYCARDIA [None]
  - DEHYDRATION [None]
  - CARDIAC ARREST [None]
  - ATRIOVENTRICULAR BLOCK FIRST DEGREE [None]
  - SYNCOPE [None]
  - HYPOTENSION [None]
